FAERS Safety Report 23761876 (Version 1)
Quarter: 2024Q2

REPORT INFORMATION
  Report Type: Spontaneous
  Country: CN (occurrence: CN)
  Receive Date: 20240419
  Receipt Date: 20240419
  Transmission Date: 20240716
  Serious: Yes (Hospitalization)
  Sender: FDA-Public Use
  Company Number: None

PATIENT
  Age: 62 Year
  Sex: Female
  Weight: 59 kg

DRUGS (2)
  1. CYCLOPHOSPHAMIDE [Suspect]
     Active Substance: CYCLOPHOSPHAMIDE
     Indication: Breast cancer female
     Dosage: 1 G, ONE TIME IN 21 DAYS, START TIME:AT 9:59
     Route: 041
     Dates: start: 20240406, end: 20240406
  2. EPIRUBICIN HYDROCHLORIDE [Suspect]
     Active Substance: EPIRUBICIN HYDROCHLORIDE
     Indication: Breast cancer female
     Dosage: 150 MG, ONE TIME IN 21 DAYS, START TIME:AT 9:59
     Route: 041
     Dates: start: 20240406, end: 20240406

REACTIONS (3)
  - Eosinophil count decreased [Unknown]
  - Condition aggravated [Unknown]
  - Haemoglobin decreased [Unknown]

NARRATIVE: CASE EVENT DATE: 20240408
